FAERS Safety Report 17646623 (Version 2)
Quarter: 2025Q4

REPORT INFORMATION
  Report Type: Spontaneous
  Country: US (occurrence: US)
  Receive Date: 20200408
  Receipt Date: 20251002
  Transmission Date: 20260118
  Serious: No
  Sender: VERTEX
  Company Number: US-VERTEX PHARMACEUTICALS-2020-001664

PATIENT
  Age: 25 Year
  Sex: Male

DRUGS (1)
  1. TRIKAFTA [Suspect]
     Active Substance: ELEXACAFTOR\IVACAFTOR\TEZACAFTOR
     Indication: Cystic fibrosis
     Dosage: 2 DOSAGE FORM (TABLETS), BID
     Route: 048
     Dates: start: 20191119

REACTIONS (6)
  - Productive cough [Recovered/Resolved]
  - Rash erythematous [Unknown]
  - Rosacea [Unknown]
  - Illness [Not Recovered/Not Resolved]
  - Pruritus [Unknown]
  - Acne [Unknown]

NARRATIVE: CASE EVENT DATE: 20191101
